FAERS Safety Report 5333913-7 (Version None)
Quarter: 2007Q2

REPORT INFORMATION
  Report Type: 
  Country: None (occurrence: None)
  Receive Date: 20070524
  Receipt Date: 20070516
  Transmission Date: 20071010
  Serious: Yes (Hospitalization)
  Sender: FDA-Public Use
  Company Number: HQWYE952002MAY07

PATIENT
  Sex: Male

DRUGS (9)
  1. CORDARONE [Suspect]
     Indication: SUPRAVENTRICULAR TACHYARRHYTHMIA
     Route: 048
     Dates: start: 20040101, end: 20070103
  2. COZAAR [Concomitant]
     Route: 048
  3. XALATAN [Concomitant]
     Dosage: UNSPECIFIED
     Route: 047
  4. METOPROLOL TARTRATE [Concomitant]
  5. ALBYL [Concomitant]
     Route: 048
  6. MONOKET OD [Concomitant]
     Route: 048
  7. COSOPT [Concomitant]
  8. ALPHAGAN [Concomitant]
     Dosage: UNSPECIFIED
     Route: 047
  9. SIMVASTATIN [Concomitant]
     Route: 048

REACTIONS (3)
  - ANGINA PECTORIS [None]
  - HYPERTHYROIDISM [None]
  - MYOCARDIAL INFARCTION [None]
